FAERS Safety Report 24167411 (Version 1)
Quarter: 2024Q3

REPORT INFORMATION
  Report Type: Spontaneous
  Country: AR (occurrence: AR)
  Receive Date: 20240802
  Receipt Date: 20240802
  Transmission Date: 20241017
  Serious: Yes (Other)
  Sender: SANDOZ
  Company Number: AR-SANDOZ-SDZ2024AR070022

PATIENT
  Age: 11 Year
  Sex: Male
  Weight: 35 kg

DRUGS (2)
  1. OMNITROPE [Suspect]
     Active Substance: SOMATROPIN
     Indication: Growth retardation
     Dosage: (1,6 (FREQUENCY 7 AS REPORTED)
     Route: 058
     Dates: start: 20190807
  2. OMNITROPE [Suspect]
     Active Substance: SOMATROPIN
     Indication: Growth hormone deficiency

REACTIONS (4)
  - Foot fracture [Unknown]
  - Limb injury [Unknown]
  - Product use issue [Unknown]
  - Product dose omission issue [Unknown]
